FAERS Safety Report 7327728-8 (Version None)
Quarter: 2011Q1

REPORT INFORMATION
  Report Type: 
  Country: None (occurrence: None)
  Receive Date: 20110303
  Receipt Date: 20110217
  Transmission Date: 20110831
  Serious: Yes (Hospitalization, Other)
  Sender: FDA-Public Use
  Company Number: GB-AMGEN-GBRCT2010008765

PATIENT
  Age: 65 Year
  Sex: Male
  Weight: 96 kg

DRUGS (12)
  1. GLICLAZIDE [Concomitant]
     Dosage: 40 MG, 1X/DAY
  2. PREDNISOLONE [Concomitant]
     Dosage: 10 MG, 1X/DAY
  3. OMEPRAZOLE [Concomitant]
     Dosage: 20 MG, 1X/DAY
  4. ETANERCEPT [Suspect]
     Indication: RHEUMATOID ARTHRITIS
     Dosage: UNK
     Dates: start: 20060415, end: 20100811
  5. GLICLAZIDE [Concomitant]
     Dosage: 40 MG, 2X/DAY
  6. GLICLAZIDE [Concomitant]
     Dosage: 40 MG, QD
  7. ALENDRONIC ACID [Concomitant]
     Dosage: 70 MG, WEEKLY
  8. ACETYLSALICYLIC ACID [Concomitant]
     Dosage: 5 MG, QD
  9. METFORMIN [Concomitant]
     Dosage: UNK
     Dates: start: 20100710
  10. RAMIPRIL [Concomitant]
     Dosage: 10 MG, 1X/DAY
  11. SOLPADOL [Concomitant]
     Dosage: 1 DF (30/500), 3X/DAY
  12. ACETYLSALICYLIC ACID [Concomitant]
     Dosage: 5 MG, 1X/DAY

REACTIONS (4)
  - ENCEPHALITIS HERPES [None]
  - ABDOMINAL PAIN [None]
  - ILEUS PARALYTIC [None]
  - POSTOPERATIVE WOUND INFECTION [None]
